FAERS Safety Report 14599643 (Version 1)
Quarter: 2018Q1

REPORT INFORMATION
  Report Type: Spontaneous
  Country: US (occurrence: US)
  Receive Date: 20180304
  Receipt Date: 20180304
  Transmission Date: 20180509
  Serious: Yes (Life-Threatening, Hospitalization, Disabling, Other)
  Sender: FDA-Public Use
  Company Number: None

PATIENT
  Age: 25 Year
  Sex: Female
  Weight: 99 kg

DRUGS (2)
  1. WOMEN^S ONE A DAY [Concomitant]
     Active Substance: VITAMINS
  2. VIVITROL [Suspect]
     Active Substance: NALTREXONE
     Indication: DRUG DEPENDENCE
     Dosage: QUANTITY:1 INJECTION(S);OTHER FREQUENCY:1. MONTH;?
     Route: 030
     Dates: start: 20180301, end: 20180301

REACTIONS (2)
  - Kidney infection [None]
  - Pain [None]

NARRATIVE: CASE EVENT DATE: 20180228
